FAERS Safety Report 15425718 (Version 2)
Quarter: 2018Q4

REPORT INFORMATION
  Report Type: Spontaneous
  Country: FR (occurrence: FR)
  Receive Date: 20180925
  Receipt Date: 20181010
  Transmission Date: 20190204
  Serious: Yes (Other)
  Sender: FDA-Public Use
  Company Number: FR-009507513-1809FRA010387

PATIENT
  Age: 89 Year
  Sex: Female
  Weight: 64 kg

DRUGS (22)
  1. ZANIDIP [Concomitant]
     Active Substance: LERCANIDIPINE HYDROCHLORIDE
     Indication: MYOCARDIAL ISCHAEMIA
     Dosage: 1 DAILY
  2. TAHOR [Concomitant]
     Active Substance: ATORVASTATIN CALCIUM
     Indication: MYOCARDIAL ISCHAEMIA
     Dosage: 1 DAILY
  3. STAGID [Concomitant]
     Active Substance: METFORMIN PAMOATE
     Indication: MYOCARDIAL ISCHAEMIA
     Dosage: 2 DAILY
  4. STAGID [Concomitant]
     Active Substance: METFORMIN PAMOATE
     Indication: HYPERTENSION
  5. FLUDEX (INDAPAMIDE) [Concomitant]
     Active Substance: INDAPAMIDE
     Indication: HYPERTENSION
  6. ZANIDIP [Concomitant]
     Active Substance: LERCANIDIPINE HYDROCHLORIDE
     Indication: DIABETES MELLITUS
  7. ADANCOR [Concomitant]
     Active Substance: NICORANDIL
     Indication: HYPERTENSION
  8. SPAGULAX [Concomitant]
     Active Substance: PLANTAGO OVATA SEED
     Indication: HYPERTENSION
  9. TAHOR [Concomitant]
     Active Substance: ATORVASTATIN CALCIUM
     Indication: DIABETES MELLITUS
  10. ADANCOR [Concomitant]
     Active Substance: NICORANDIL
     Indication: MYOCARDIAL ISCHAEMIA
     Dosage: 2 DAILY
  11. ZANIDIP [Concomitant]
     Active Substance: LERCANIDIPINE HYDROCHLORIDE
     Indication: HYPERTENSION
  12. PLAVIX [Concomitant]
     Active Substance: CLOPIDOGREL BISULFATE
     Indication: HYPERTENSION
  13. STAGID [Concomitant]
     Active Substance: METFORMIN PAMOATE
     Indication: DIABETES MELLITUS
  14. JANUVIA [Suspect]
     Active Substance: SITAGLIPTIN PHOSPHATE
     Indication: TYPE 2 DIABETES MELLITUS
     Dosage: 50 MG, QD PER OS
     Route: 048
     Dates: start: 20180611, end: 20180712
  15. TAHOR [Concomitant]
     Active Substance: ATORVASTATIN CALCIUM
     Indication: HYPERTENSION
  16. SPAGULAX [Concomitant]
     Active Substance: PLANTAGO OVATA SEED
     Indication: DIABETES MELLITUS
  17. PLAVIX [Concomitant]
     Active Substance: CLOPIDOGREL BISULFATE
     Indication: MYOCARDIAL ISCHAEMIA
     Dosage: 1 DAILY
  18. FLUDEX (INDAPAMIDE) [Concomitant]
     Active Substance: INDAPAMIDE
     Indication: MYOCARDIAL ISCHAEMIA
     Dosage: 1 DAILY
  19. FLUDEX (INDAPAMIDE) [Concomitant]
     Active Substance: INDAPAMIDE
     Indication: DIABETES MELLITUS
  20. SPAGULAX [Concomitant]
     Active Substance: PLANTAGO OVATA SEED
     Indication: MYOCARDIAL ISCHAEMIA
     Dosage: 3 DAILY
  21. ADANCOR [Concomitant]
     Active Substance: NICORANDIL
     Indication: DIABETES MELLITUS
  22. PLAVIX [Concomitant]
     Active Substance: CLOPIDOGREL BISULFATE
     Indication: DIABETES MELLITUS

REACTIONS (1)
  - Toxic skin eruption [Unknown]

NARRATIVE: CASE EVENT DATE: 20180625
